FAERS Safety Report 25150090 (Version 1)
Quarter: 2025Q2

REPORT INFORMATION
  Report Type: Spontaneous
  Country: ES (occurrence: ES)
  Receive Date: 20250402
  Receipt Date: 20250402
  Transmission Date: 20250717
  Serious: Yes (Other)
  Sender: BRACCO
  Company Number: ES-BRACCO-2025ES02046

PATIENT
  Sex: Female

DRUGS (2)
  1. IOMERON [Suspect]
     Active Substance: IOMEPROL
     Dates: start: 20250321, end: 20250321
  2. SALINE [Concomitant]
     Active Substance: SODIUM CHLORIDE

REACTIONS (6)
  - Contraindicated product administered [Recovered/Resolved]
  - Respiratory distress [Recovered/Resolved]
  - Dizziness [Recovered/Resolved]
  - Erythema [Recovered/Resolved]
  - Pruritus [Recovered/Resolved]
  - Blood pressure decreased [Recovered/Resolved]

NARRATIVE: CASE EVENT DATE: 20250321
